FAERS Safety Report 8298042-1 (Version None)
Quarter: 2012Q2

REPORT INFORMATION
  Report Type: 
  Country: None (occurrence: None)
  Receive Date: 20120419
  Receipt Date: 20120411
  Transmission Date: 20120825
  Serious: Yes (Other)
  Sender: FDA-Public Use
  Company Number: US-UCBSA-055228

PATIENT
  Age: 40 Year
  Sex: Male

DRUGS (4)
  1. CIMZIA [Suspect]
     Indication: RHEUMATOID ARTHRITIS
  2. CIMZIA [Suspect]
     Indication: COLITIS
  3. CIMZIA [Suspect]
     Dates: start: 20110201
  4. CIMZIA [Suspect]
     Dates: start: 20110201

REACTIONS (1)
  - UPPER RESPIRATORY TRACT INFECTION [None]
